FAERS Safety Report 7982031-8 (Version None)
Quarter: 2011Q4

REPORT INFORMATION
  Report Type: 
  Country: None (occurrence: None)
  Receive Date: 20111215
  Receipt Date: 20111212
  Transmission Date: 20120403
  Serious: Yes (Other)
  Sender: FDA-Public Use
  Company Number: JP-PFIZER INC-2011295227

PATIENT
  Age: 64 Year
  Sex: Female

DRUGS (4)
  1. RISPERIDONE [Concomitant]
  2. CLINDAMYCIN HCL [Suspect]
     Dosage: 300 MG, 3X/DAY
     Route: 048
     Dates: start: 20111102
  3. SULFAMETHOXAZOLE AND TRIMETHOPRIM [Suspect]
     Route: 048
  4. LEVOFLOXACIN [Suspect]
     Route: 048

REACTIONS (1)
  - PANCYTOPENIA [None]
